FAERS Safety Report 5354680-7 (Version None)
Quarter: 2007Q2

REPORT INFORMATION
  Report Type: 
  Country: None (occurrence: None)
  Receive Date: 20070612
  Receipt Date: 20070611
  Transmission Date: 20071010
  Serious: Yes (Other)
  Sender: FDA-Public Use
  Company Number: DE-MERCK-0705DEU00083

PATIENT
  Age: 65 Year
  Sex: Male
  Weight: 72 kg

DRUGS (3)
  1. ZOCOR [Suspect]
     Route: 048
     Dates: start: 20070410, end: 20070501
  2. ZOCOR [Suspect]
     Route: 048
     Dates: start: 20070520
  3. TIMONIL [Concomitant]
     Indication: EPILEPSY
     Route: 065
     Dates: start: 19970101

REACTIONS (1)
  - GRAND MAL CONVULSION [None]
